FAERS Safety Report 17230824 (Version 1)
Quarter: 2020Q1

REPORT INFORMATION
  Report Type: Spontaneous
  Country: GB (occurrence: GB)
  Receive Date: 20200103
  Receipt Date: 20200103
  Transmission Date: 20200409
  Serious: Yes (Death)
  Sender: FDA-Public Use
  Company Number: GB-AMNEAL PHARMACEUTICALS-2019-AMRX-03476

PATIENT

DRUGS (2)
  1. DOXYCYCLINE HYCLATE DELAYED RELEASE [Suspect]
     Active Substance: DOXYCYCLINE HYCLATE
     Indication: PEMPHIGOID
     Dosage: 200 MILLIGRAM, DAILY
     Route: 048
  2. PREDNISOLONE SODIUM PHOSPHATE. [Suspect]
     Active Substance: PREDNISOLONE SODIUM PHOSPHATE
     Indication: PEMPHIGOID
     Dosage: 0.5 MILLIGRAM/KILOGRAM, DAILY
     Route: 048

REACTIONS (2)
  - Off label use [Unknown]
  - Lower respiratory tract infection [Fatal]
